FAERS Safety Report 21727468 (Version 1)
Quarter: 2022Q4

REPORT INFORMATION
  Report Type: Spontaneous
  Country: US (occurrence: None)
  Receive Date: 20221213
  Receipt Date: 20221213
  Transmission Date: 20230113
  Serious: Yes (unspecified)
  Sender: FDA-Public Use
  Company Number: None

PATIENT
  Age: 47 Year
  Sex: Female
  Weight: 71.1 kg

DRUGS (1)
  1. TRETINOIN [Suspect]
     Active Substance: TRETINOIN
     Indication: Acne
     Dosage: OTHER QUANTITY : .5 TEASPOON(S);?FREQUENCY : AT BEDTIME;?
     Route: 061
     Dates: start: 20210701

REACTIONS (6)
  - Feeling abnormal [None]
  - Anxiety [None]
  - Formication [None]
  - Fear [None]
  - Psychotic disorder [None]
  - Suicidal ideation [None]

NARRATIVE: CASE EVENT DATE: 20221101
